FAERS Safety Report 4444486-5 (Version None)
Quarter: 2004Q3

REPORT INFORMATION
  Report Type: 
  Country: None (occurrence: None)
  Receive Date: 20040909
  Receipt Date: 20040830
  Transmission Date: 20050211
  Serious: Yes (Death)
  Sender: FDA-Public Use
  Company Number: IT-JNJFOC-20040900314

PATIENT
  Age: 55 Year
  Sex: Female

DRUGS (3)
  1. INFLIXIMAB [Suspect]
     Indication: SARCOIDOSIS
     Dosage: RECEIVED 2 DOSES (APPROXIMATELY 4 WEEKS APART)
     Route: 042
  2. CYCLOSPORINE [Concomitant]
     Indication: SARCOIDOSIS
  3. PREDNISONE [Concomitant]
     Indication: SARCOIDOSIS

REACTIONS (2)
  - DISSEMINATED TUBERCULOSIS [None]
  - TUBERCULOSIS GASTROINTESTINAL [None]
